FAERS Safety Report 7264198-2 (Version None)
Quarter: 2011Q1

REPORT INFORMATION
  Report Type: 
  Country: None (occurrence: None)
  Receive Date: 20110131
  Receipt Date: 20110118
  Transmission Date: 20110831
  Serious: No
  Sender: FDA-Public Use
  Company Number: US-BIOGENIDEC-2010BI023290

PATIENT
  Age: 52 Year
  Sex: Female

DRUGS (1)
  1. TYSABRI [Suspect]
     Indication: MULTIPLE SCLEROSIS
     Route: 042
     Dates: start: 20100607

REACTIONS (8)
  - ERYTHEMA [None]
  - MULTIPLE ALLERGIES [None]
  - DYSPHONIA [None]
  - FATIGUE [None]
  - PARAESTHESIA [None]
  - WEIGHT INCREASED [None]
  - SOMNOLENCE [None]
  - BAND SENSATION [None]
